FAERS Safety Report 14529201 (Version 1)
Quarter: 2018Q1

REPORT INFORMATION
  Report Type: Spontaneous
  Country: US (occurrence: US)
  Receive Date: 20180213
  Receipt Date: 20180213
  Transmission Date: 20180509
  Serious: Yes (Hospitalization)
  Sender: FDA-Public Use
  Company Number: None

PATIENT
  Sex: Female

DRUGS (16)
  1. PRAVASTATIN. [Concomitant]
     Active Substance: PRAVASTATIN
  2. CELEBREX [Concomitant]
     Active Substance: CELECOXIB
  3. CALCIUM CIT [Concomitant]
  4. MAGNESIUM [Concomitant]
     Active Substance: MAGNESIUM
  5. ALLOPURINOL. [Concomitant]
     Active Substance: ALLOPURINOL
  6. GLIPIZIDE. [Concomitant]
     Active Substance: GLIPIZIDE
  7. ZOLEDRONIC ACID, 5 MG [Suspect]
     Active Substance: ZOLEDRONIC ACID
     Indication: OSTEOPOROSIS
     Dosage: FREQUENCY - ONCE EVERY YEAR
     Route: 042
     Dates: start: 20130513
  8. ASPIRIN. [Concomitant]
     Active Substance: ASPIRIN
  9. RESTORIL [Concomitant]
     Active Substance: TEMAZEPAM
  10. ROBAXIN [Concomitant]
     Active Substance: METHOCARBAMOL
  11. PRAVASTATIN. [Concomitant]
     Active Substance: PRAVASTATIN
  12. VITAMIN D3 [Concomitant]
     Active Substance: CHOLECALCIFEROL
  13. BENICAR [Concomitant]
     Active Substance: OLMESARTAN MEDOXOMIL
  14. OXYCODONE AND ACETAMINOPHEN [Concomitant]
     Active Substance: ACETAMINOPHEN\OXYCODONE HYDROCHLORIDE
  15. TAMOXIFEN [Concomitant]
     Active Substance: TAMOXIFEN
  16. HYDROCHLOROT [Concomitant]
     Active Substance: HYDROCHLOROTHIAZIDE

REACTIONS (1)
  - Hospitalisation [None]
